FAERS Safety Report 8844235 (Version 2)
Quarter: 2012Q4

REPORT INFORMATION
  Report Type: Report from Study
  Country: JP (occurrence: JP)
  Receive Date: 20121016
  Receipt Date: 20121121
  Transmission Date: 20130627
  Serious: Yes (Other)
  Sender: FDA-Public Use
  Company Number: JP-VERTEX PHARMACEUTICAL INC.-2012-022834

PATIENT
  Age: 67 Year
  Sex: Male

DRUGS (9)
  1. VX-950 (TELAPREVIR) [Suspect]
     Indication: CHRONIC HEPATITIS C
     Dosage: 1500 mg, qd
     Route: 048
     Dates: start: 20120802, end: 20120926
  2. VX-950 (TELAPREVIR) [Suspect]
     Dosage: 1000 mg, qd
     Route: 048
     Dates: start: 20120927, end: 20121024
  3. RIBAVIRIN [Suspect]
     Indication: CHRONIC HEPATITIS C
     Dosage: 400 mg, qd
     Route: 048
     Dates: start: 20120802, end: 20120912
  4. RIBAVIRIN [Suspect]
     Dosage: 200 mg, qd
     Route: 048
     Dates: start: 20120913, end: 20121024
  5. PEGINTERFERON ALFA-2B [Suspect]
     Indication: CHRONIC HEPATITIS C
     Dosage: 1.6 ?g/kg, UNK
     Route: 058
     Dates: start: 20120802
  6. PEGINTERFERON ALFA-2B [Suspect]
     Dosage: 1.5 ?g/kg, UNK
     Route: 058
  7. CLARITIN                           /00413701/ [Concomitant]
     Dosage: 10 mg, qd
     Route: 048
  8. PARIET [Concomitant]
     Dosage: 10 mg, qd
     Route: 048
     Dates: start: 20120802
  9. PAXIL [Concomitant]
     Dosage: 10 mg, qd
     Route: 048
     Dates: start: 20120802

REACTIONS (1)
  - Neutrophil count decreased [Not Recovered/Not Resolved]
